FAERS Safety Report 4394673-X (Version None)
Quarter: 2004Q3

REPORT INFORMATION
  Report Type: 
  Country: None (occurrence: None)
  Receive Date: 20040706
  Receipt Date: 20040622
  Transmission Date: 20050211
  Serious: Yes (Other)
  Sender: FDA-Public Use
  Company Number: HQWYE688725JUN04

PATIENT
  Age: 69 Year
  Sex: Male

DRUGS (11)
  1. CORDARONE [Suspect]
     Indication: ATRIAL FIBRILLATION
     Dosage: SEE IMAGE
     Route: 042
     Dates: start: 20010101, end: 20010101
  2. CORDARONE [Suspect]
     Indication: ATRIAL FIBRILLATION
     Dosage: SEE IMAGE
     Route: 042
  3. DIGOXIN [Suspect]
     Indication: ATRIAL FIBRILLATION
     Dosage: SEE IMAGE
     Route: 042
     Dates: start: 20010101, end: 20010101
  4. DIGOXIN [Suspect]
     Indication: ATRIAL FIBRILLATION
     Dosage: SEE IMAGE
     Route: 042
     Dates: start: 20010101, end: 20010101
  5. DOPAMINE HCL [Concomitant]
  6. ..... [Concomitant]
  7. NOREPINEPHRINE (NOREPINEPHRINE) [Concomitant]
  8. ..... [Concomitant]
  9. DOBUTAMINE (DOBUTAMINE) [Concomitant]
  10. .... [Concomitant]
  11. FUROSEMIDE [Concomitant]

REACTIONS (5)
  - CARDIOACTIVE DRUG LEVEL INCREASED [None]
  - DRUG INTERACTION [None]
  - RENAL IMPAIRMENT [None]
  - THERAPEUTIC AGENT TOXICITY [None]
  - VENTRICULAR TACHYCARDIA [None]
